FAERS Safety Report 10737928 (Version 1)
Quarter: 2015Q1

REPORT INFORMATION
  Report Type: Report from Study
  Country: CA (occurrence: CA)
  Receive Date: 20150126
  Receipt Date: 20150126
  Transmission Date: 20150721
  Serious: Yes (Other)
  Sender: FDA-Public Use
  Company Number: CA-ABBVIE-15K-028-1335530-00

PATIENT
  Sex: Male
  Weight: 61.74 kg

DRUGS (4)
  1. HUMIRA [Suspect]
     Active Substance: ADALIMUMAB
     Indication: CROHN^S DISEASE
     Route: 058
     Dates: start: 20091114
  2. ALENDRONATE [Concomitant]
     Active Substance: ALENDRONATE SODIUM
     Indication: BONE DISORDER
     Route: 048
  3. D FORTE [Concomitant]
     Indication: VITAMIN SUPPLEMENTATION
     Route: 048
  4. CALPOL [Concomitant]
     Active Substance: ACETAMINOPHEN
     Indication: BLOOD CALCIUM
     Route: 048

REACTIONS (1)
  - Small intestinal perforation [Recovered/Resolved]
